FAERS Safety Report 20061994 (Version 1)
Quarter: 2021Q4

REPORT INFORMATION
  Report Type: Report from Study
  Country: US (occurrence: US)
  Receive Date: 20211112
  Receipt Date: 20211112
  Transmission Date: 20220303
  Serious: Yes (Other)
  Sender: FDA-Public Use
  Company Number: US-UCBSA-2021051960

PATIENT
  Sex: Female

DRUGS (1)
  1. CERTOLIZUMAB PEGOL [Suspect]
     Active Substance: CERTOLIZUMAB PEGOL
     Indication: Psoriasis
     Dosage: 200 MILLIGRAM, EV 2 WEEKS(QOW)

REACTIONS (4)
  - Loss of consciousness [Not Recovered/Not Resolved]
  - Injection site reaction [Not Recovered/Not Resolved]
  - Dizziness [Not Recovered/Not Resolved]
  - Skin burning sensation [Not Recovered/Not Resolved]
